FAERS Safety Report 15145046 (Version 5)
Quarter: 2019Q4

REPORT INFORMATION
  Report Type: Spontaneous
  Country: US (occurrence: US)
  Receive Date: 20180713
  Receipt Date: 20191114
  Transmission Date: 20200122
  Serious: Yes (Hospitalization)
  Sender: FDA-Public Use
  Company Number: US-ACTELION-A-US2018-175176

PATIENT
  Age: 65 Year
  Sex: Female
  Weight: 60.77 kg

DRUGS (7)
  1. VELETRI [Suspect]
     Active Substance: EPOPROSTENOL
     Indication: PULMONARY HYPERTENSION
     Dosage: UNK
     Route: 042
  2. VELETRI [Suspect]
     Active Substance: EPOPROSTENOL
     Dosage: 50 NG/KG, PER MIN
     Route: 042
  3. ADCIRCA [Concomitant]
     Active Substance: TADALAFIL
     Dosage: UNK
  4. LASIX [Concomitant]
     Active Substance: FUROSEMIDE
     Dosage: UNK
  5. ALDACTONE [Concomitant]
     Active Substance: SPIRONOLACTONE
     Dosage: UNK
  6. VELETRI [Suspect]
     Active Substance: EPOPROSTENOL
     Dosage: 36 NG/KG, PER MIN
     Route: 042
  7. LETAIRIS [Concomitant]
     Active Substance: AMBRISENTAN
     Dosage: UNK

REACTIONS (7)
  - Influenza [Unknown]
  - Supraventricular tachycardia [Recovering/Resolving]
  - Valsalva maneuver [Recovering/Resolving]
  - Dyspnoea exertional [Unknown]
  - Pain in jaw [Unknown]
  - Palpitations [Unknown]
  - Pneumonia [Unknown]

NARRATIVE: CASE EVENT DATE: 20180702
